FAERS Safety Report 12348363 (Version 1)
Quarter: 2016Q2

REPORT INFORMATION
  Report Type: Spontaneous
  Country: FR (occurrence: FR)
  Receive Date: 20160509
  Receipt Date: 20160509
  Transmission Date: 20160815
  Serious: Yes (Hospitalization)
  Sender: FDA-Public Use
  Company Number: FR-JNJFOC-20160503235

PATIENT
  Age: 11 Month
  Sex: Female

DRUGS (1)
  1. DUROGESIC [Suspect]
     Active Substance: FENTANYL
     Indication: ACCIDENTAL EXPOSURE TO PRODUCT BY CHILD
     Route: 002
     Dates: start: 20160410, end: 20160410

REACTIONS (4)
  - Miosis [Recovered/Resolved]
  - Accidental exposure to product by child [Unknown]
  - Vomiting [Recovered/Resolved]
  - Psychomotor skills impaired [Recovered/Resolved]

NARRATIVE: CASE EVENT DATE: 20160410
